FAERS Safety Report 7045590-8 (Version None)
Quarter: 2010Q4

REPORT INFORMATION
  Report Type: 
  Country: None (occurrence: None)
  Receive Date: 20101014
  Receipt Date: 20101011
  Transmission Date: 20110411
  Serious: Yes (Hospitalization, Other)
  Sender: FDA-Public Use
  Company Number: DE-ROCHE-731614

PATIENT
  Sex: Male
  Weight: 72 kg

DRUGS (5)
  1. XELODA [Suspect]
     Route: 048
     Dates: start: 20100906, end: 20100910
  2. BISOPROLOL [Concomitant]
     Route: 048
  3. ENALAPRIL MALEATE [Concomitant]
     Route: 048
  4. HCT [Concomitant]
     Route: 048
  5. PANTOPRAZOLE [Concomitant]
     Route: 048

REACTIONS (2)
  - MYOCARDIAL INFARCTION [None]
  - STRESS CARDIOMYOPATHY [None]
